FAERS Safety Report 17388075 (Version 1)
Quarter: 2020Q1

REPORT INFORMATION
  Report Type: Spontaneous
  Country: US (occurrence: US)
  Receive Date: 20200203
  Receipt Date: 20200203
  Transmission Date: 20200409
  Serious: Yes (Hospitalization)
  Sender: FDA-Public Use
  Company Number: None

PATIENT
  Age: 68 Year
  Sex: Male
  Weight: 73 kg

DRUGS (1)
  1. HEPARIN (HEPARIN NA 5000UNT/ML INJ) [Suspect]
     Active Substance: HEPARIN SODIUM
     Indication: VASCULAR DEVICE USER
     Route: 058
     Dates: start: 20190827, end: 20190828

REACTIONS (1)
  - Thrombocytopenia [None]

NARRATIVE: CASE EVENT DATE: 20190905
